FAERS Safety Report 25037689 (Version 1)
Quarter: 2025Q1

REPORT INFORMATION
  Report Type: Spontaneous
  Country: PL (occurrence: PL)
  Receive Date: 20250304
  Receipt Date: 20250304
  Transmission Date: 20250408
  Serious: Yes (Hospitalization, Other)
  Sender: SANDOZ
  Company Number: PL-AstraZeneca-2023A251911

PATIENT
  Age: 46 Year
  Sex: Male
  Weight: 101 kg

DRUGS (10)
  1. CISPLATIN [Suspect]
     Active Substance: CISPLATIN
     Indication: Non-small cell lung cancer metastatic
     Route: 042
     Dates: start: 20230417, end: 20230621
  2. PEMETREXED [Suspect]
     Active Substance: PEMETREXED
     Indication: Non-small cell lung cancer metastatic
     Route: 042
     Dates: start: 20230417, end: 20230920
  3. PEMBROLIZUMAB [Suspect]
     Active Substance: PEMBROLIZUMAB
     Indication: Non-small cell lung cancer metastatic
     Route: 042
     Dates: start: 20230417, end: 20230920
  4. CONTROLOC [Concomitant]
     Active Substance: PANTOPRAZOLE SODIUM
     Indication: Product used for unknown indication
     Dosage: 20 MG
     Route: 048
     Dates: start: 20230414
  5. DEXAMETHASONE [Concomitant]
     Active Substance: DEXAMETHASONE
     Indication: Product used for unknown indication
     Dosage: 4 MG, Q12H
     Route: 048
     Dates: start: 20230820, end: 20231025
  6. Ebivol [Concomitant]
     Indication: Product used for unknown indication
     Dosage: 5 MG
     Route: 048
     Dates: start: 202207
  7. ESTAZOLAM [Concomitant]
     Active Substance: ESTAZOLAM
     Indication: Product used for unknown indication
     Dosage: 1 MG
     Route: 048
     Dates: start: 20230414
  8. Folik [Concomitant]
     Indication: Product used for unknown indication
     Dosage: 0.4 MG
     Route: 048
     Dates: start: 20230406
  9. OPIPRAMOL HYDROCHLORIDE [Concomitant]
     Active Substance: OPIPRAMOL HYDROCHLORIDE
     Indication: Product used for unknown indication
     Dosage: 50 MG, Q8H
     Route: 048
     Dates: start: 20230323
  10. TELMISARTAN [Concomitant]
     Active Substance: TELMISARTAN
     Indication: Product used for unknown indication
     Dosage: 40 MG
     Route: 048
     Dates: start: 202207

REACTIONS (1)
  - Hypophysitis [Not Recovered/Not Resolved]

NARRATIVE: CASE EVENT DATE: 20231023
